FAERS Safety Report 10641114 (Version 1)
Quarter: 2014Q4

REPORT INFORMATION
  Report Type: Spontaneous
  Country: US (occurrence: None)
  Receive Date: 20141208
  Receipt Date: 20141208
  Transmission Date: 20150529
  Serious: No
  Sender: FDA-Public Use
  Company Number: None

PATIENT
  Age: 62 Year
  Sex: Female

DRUGS (1)
  1. COPAXONE [Suspect]
     Active Substance: GLATIRAMER ACETATE
     Indication: MULTIPLE SCLEROSIS
     Dosage: 40MG  40MG SUBQ 3X/WEEK  SUBQ
     Route: 058
     Dates: start: 20140502

REACTIONS (1)
  - Herpes virus infection [None]

NARRATIVE: CASE EVENT DATE: 201409
